FAERS Safety Report 4580134-1 (Version None)
Quarter: 2005Q1

REPORT INFORMATION
  Report Type: 
  Country: None (occurrence: None)
  Receive Date: 20050210
  Receipt Date: 20050204
  Transmission Date: 20050727
  Serious: Yes (Other)
  Sender: FDA-Public Use
  Company Number: DE-2005-001234

PATIENT
  Age: 48 Year
  Sex: Female
  Weight: 50 kg

DRUGS (3)
  1. MIRENA [Suspect]
     Dosage: 20  UG/DAY, CONT, INTRA-UTERINE
     Route: 015
     Dates: start: 20020301
  2. KREON [Concomitant]
  3. ACETAMINOPHEN [Concomitant]

REACTIONS (4)
  - MYALGIA [None]
  - PAIN IN EXTREMITY [None]
  - PANCREATIC INSUFFICIENCY [None]
  - WEIGHT DECREASED [None]
